FAERS Safety Report 21272073 (Version 1)
Quarter: 2022Q3

REPORT INFORMATION
  Report Type: Spontaneous
  Country: US (occurrence: US)
  Receive Date: 20220830
  Receipt Date: 20220830
  Transmission Date: 20221027
  Serious: Yes (Life-Threatening)
  Sender: FDA-Public Use
  Company Number: US-AMERICAN REGENT INC-2022000476

PATIENT
  Sex: Female
  Weight: 74.83 kg

DRUGS (3)
  1. FERRIC CARBOXYMALTOSE [Suspect]
     Active Substance: FERRIC CARBOXYMALTOSE
     Indication: Iron deficiency anaemia
     Dosage: 750 MILLIGRAM IN 100 ML 0.9% NS, SINGLE
     Route: 042
     Dates: start: 20201112, end: 20201112
  2. PREDNISONE [Concomitant]
     Active Substance: PREDNISONE
     Indication: Systemic lupus erythematosus
     Dosage: 20 MILLIGRAM, QD
     Route: 048
  3. OXYCODONE HYDROCHLORIDE [Concomitant]
     Active Substance: OXYCODONE HYDROCHLORIDE
     Indication: Pain
     Dosage: 10 MILLIGRAM EVERY 8 HRS
     Route: 048

REACTIONS (8)
  - Hypophosphataemia [Recovered/Resolved]
  - Malaise [Unknown]
  - Pain [Unknown]
  - Stomatitis [Unknown]
  - Asthenia [Unknown]
  - Arthralgia [Unknown]
  - Pyrexia [Unknown]
  - Rash [Unknown]

NARRATIVE: CASE EVENT DATE: 20200101
